FAERS Safety Report 8791592 (Version 3)
Quarter: 2023Q2

REPORT INFORMATION
  Report Type: Spontaneous
  Country: RU (occurrence: RU)
  Receive Date: 20120918
  Receipt Date: 20230609
  Transmission Date: 20230722
  Serious: Yes (Other)
  Sender: FDA-Public Use
  Company Number: PHHY2012RU079314

PATIENT
  Age: 7 Year
  Sex: Male

DRUGS (14)
  1. TRILEPTAL [Suspect]
     Active Substance: OXCARBAZEPINE
     Indication: Epilepsy
     Dosage: 35 MG/KG, QD
     Route: 065
  2. TOPAMAX [Suspect]
     Active Substance: TOPIRAMATE
     Indication: Epilepsy
     Dosage: 75 MG, QD
     Route: 065
     Dates: start: 201109
  3. TOPAMAX [Suspect]
     Active Substance: TOPIRAMATE
     Dosage: GRADUAL DOSE ESCALATION TO 7.5 MG/KG, QD
     Route: 065
  4. CARBAMAZEPINE [Suspect]
     Active Substance: CARBAMAZEPINE
     Indication: Epilepsy
     Dosage: 30 MG/KG, QD (RETARD)
     Route: 065
  5. VALPROIC ACID [Suspect]
     Active Substance: VALPROIC ACID
     Indication: Epilepsy
     Dosage: 25 MG/KG, QD
     Route: 065
  6. VALPROIC ACID [Suspect]
     Active Substance: VALPROIC ACID
     Dosage: 45 MG/KG, QD (INCREASED)
     Route: 065
     Dates: end: 201109
  7. PHENOBARBITAL [Suspect]
     Active Substance: PHENOBARBITAL
     Indication: Epilepsy
     Dosage: 0.08 G, TID
     Route: 065
     Dates: start: 201202
  8. PREDNISOLONE [Suspect]
     Active Substance: PREDNISOLONE
     Indication: Epilepsy
     Dosage: 1-1.5 MG/KG, QD
     Route: 065
  9. PREDNISOLONE [Suspect]
     Active Substance: PREDNISOLONE
     Dosage: 25 MG, QD
     Route: 065
  10. PREDNISOLONE [Suspect]
     Active Substance: PREDNISOLONE
     Dosage: GRADUAL DECREASE TO 5 MG, QW
     Route: 065
  11. CEFTRIAXONE [Concomitant]
     Active Substance: CEFTRIAXONE
     Indication: Meningoencephalitis viral
     Dosage: UNK
     Route: 065
  12. DEXAMETHASONE [Concomitant]
     Active Substance: DEXAMETHASONE
     Indication: Meningoencephalitis viral
     Dosage: UNK
     Route: 065
  13. SODIUM BICARBONATE [Concomitant]
     Active Substance: SODIUM BICARBONATE
     Indication: Meningoencephalitis viral
     Dosage: UNK
     Route: 065
  14. METHYLPREDNISOLONE [Concomitant]
     Active Substance: METHYLPREDNISOLONE
     Indication: Meningoencephalitis viral
     Dosage: UNK
     Route: 041

REACTIONS (3)
  - Epilepsy [Unknown]
  - Condition aggravated [Unknown]
  - Drug ineffective [Unknown]
